FAERS Safety Report 7863755-X (Version None)
Quarter: 2011Q4

REPORT INFORMATION
  Report Type: 
  Country: None (occurrence: None)
  Receive Date: 20111026
  Receipt Date: 20111012
  Transmission Date: 20120403
  Serious: Yes (Disabling)
  Sender: FDA-Public Use
  Company Number: TR-1188479

PATIENT
  Sex: Male

DRUGS (1)
  1. ALCAINE [Suspect]
     Dosage: (OPHTHALMIC)
     Route: 047

REACTIONS (2)
  - VISUAL ACUITY REDUCED [None]
  - DRUG ABUSE [None]
